FAERS Safety Report 20961514 (Version 1)
Quarter: 2022Q2

REPORT INFORMATION
  Report Type: Spontaneous
  Country: NZ (occurrence: NZ)
  Receive Date: 20220615
  Receipt Date: 20220615
  Transmission Date: 20220721
  Serious: Yes (Hospitalization, Other)
  Sender: FDA-Public Use
  Company Number: NZ-SUN PHARMACEUTICAL INDUSTRIES LTD-2022RR-340896

PATIENT
  Age: 78 Year
  Sex: Male

DRUGS (7)
  1. AMIODARONE [Interacting]
     Active Substance: AMIODARONE
     Indication: Atrial fibrillation
     Dosage: UNK
     Route: 065
  2. DABIGATRAN [Interacting]
     Active Substance: DABIGATRAN
     Indication: Product used for unknown indication
     Dosage: 110 MILLIGRAM, BID
     Route: 065
  3. FLECAINIDE [Suspect]
     Active Substance: FLECAINIDE
     Indication: Product used for unknown indication
     Dosage: UNK
     Route: 065
  4. CILAZAPRIL ANHYDROUS [Suspect]
     Active Substance: CILAZAPRIL ANHYDROUS
     Indication: Product used for unknown indication
     Dosage: UNK
     Route: 065
  5. AMOXICILLIN [Concomitant]
     Active Substance: AMOXICILLIN
     Indication: Infection
     Dosage: UNK
     Route: 042
  6. CEFTRIAXONE [Concomitant]
     Active Substance: CEFTRIAXONE
     Indication: Infection
     Dosage: UNK
     Route: 065
  7. GENTAMICIN [Concomitant]
     Active Substance: GENTAMICIN
     Indication: Infection
     Dosage: UNK
     Route: 065

REACTIONS (3)
  - Anticoagulant-related nephropathy [Recovered/Resolved]
  - Therapeutic product effect incomplete [Unknown]
  - Drug interaction [Unknown]
